FAERS Safety Report 7734174-1 (Version None)
Quarter: 2011Q3

REPORT INFORMATION
  Report Type: 
  Country: None (occurrence: None)
  Receive Date: 20110907
  Receipt Date: 20110902
  Transmission Date: 20111222
  Serious: Yes (Death, Hospitalization)
  Sender: FDA-Public Use
  Company Number: PH-ELI_LILLY_AND_COMPANY-PH201107006885

PATIENT
  Sex: Female
  Weight: 45 kg

DRUGS (3)
  1. CISPLATIN [Suspect]
     Indication: NON-SMALL CELL LUNG CANCER
     Dosage: 105 MG, OTHER
     Route: 042
     Dates: start: 20110510
  2. NECITUMUMAB (11F8) (LY3012211) [Suspect]
     Indication: NON-SMALL CELL LUNG CANCER
     Dosage: 800 MG, OTHER
     Route: 042
     Dates: start: 20110510
  3. GEMCITABINE HYDROCHLORIDE [Suspect]
     Indication: NON-SMALL CELL LUNG CANCER
     Dosage: 1750 MG, OTHER
     Route: 042
     Dates: start: 20110510

REACTIONS (9)
  - DIZZINESS [None]
  - HYPONATRAEMIA [None]
  - DEPRESSED LEVEL OF CONSCIOUSNESS [None]
  - BRAIN OEDEMA [None]
  - CARDIO-RESPIRATORY ARREST [None]
  - HYDROCEPHALUS [None]
  - METASTASIS [None]
  - METASTASES TO CENTRAL NERVOUS SYSTEM [None]
  - STUPOR [None]
